FAERS Safety Report 21549638 (Version 3)
Quarter: 2022Q4

REPORT INFORMATION
  Report Type: Spontaneous
  Country: US (occurrence: US)
  Receive Date: 20221103
  Receipt Date: 20221110
  Transmission Date: 20230113
  Serious: No
  Sender: FDA-Public Use
  Company Number: US-BoehringerIngelheim-2022-BI-200901

PATIENT
  Age: 65 Year
  Sex: Male

DRUGS (1)
  1. OFEV [Suspect]
     Active Substance: NINTEDANIB
     Indication: Pulmonary fibrosis
     Route: 048

REACTIONS (4)
  - Taste disorder [Unknown]
  - Wrong technique in product usage process [Recovered/Resolved]
  - Oxygen saturation decreased [Unknown]
  - Muscle tension dysphonia [Unknown]

NARRATIVE: CASE EVENT DATE: 20221103
